FAERS Safety Report 24460355 (Version 1)
Quarter: 2024Q4

REPORT INFORMATION
  Report Type: Spontaneous
  Country: US (occurrence: US)
  Receive Date: 20241018
  Receipt Date: 20241018
  Transmission Date: 20250115
  Serious: No
  Sender: ROCHE
  Company Number: US-ROCHE-3571352

PATIENT
  Age: 31 Year
  Sex: Male

DRUGS (2)
  1. RITUXIMAB [Suspect]
     Active Substance: RITUXIMAB
     Indication: Hairy cell leukaemia
     Route: 065
  2. CLADRIBINE [Concomitant]
     Active Substance: CLADRIBINE

REACTIONS (3)
  - Mycobacterium kansasii infection [Recovering/Resolving]
  - Tuberculosis [Recovering/Resolving]
  - Acid fast bacilli infection [Recovering/Resolving]
